FAERS Safety Report 12650123 (Version 1)
Quarter: 2016Q3

REPORT INFORMATION
  Report Type: Spontaneous
  Country: GB (occurrence: GB)
  Receive Date: 20160813
  Receipt Date: 20160813
  Transmission Date: 20161109
  Serious: Yes (Other)
  Sender: FDA-Public Use
  Company Number: GB-ACCORD-043122

PATIENT
  Age: 54 Year
  Sex: Male
  Weight: 69 kg

DRUGS (17)
  1. DERMOL [Concomitant]
     Active Substance: BENZALKONIUM CHLORIDE\CHLORHEXIDINE HYDROCHLORIDE\ISOPROPYL MYRISTATE\PARAFFIN
     Dosage: APPLY AS DIRECTED.
     Dates: start: 20140822
  2. DOUBLEBASE [Concomitant]
     Active Substance: ISOPROPYL MYRISTATE\PARAFFIN
     Dosage: USE AS DIRECTED
     Dates: start: 20151117, end: 20160505
  3. ALLOPURINOL. [Suspect]
     Active Substance: ALLOPURINOL
     Indication: GOUT
     Route: 048
     Dates: start: 20041201, end: 20160330
  4. WATER FOR INJECTION [Concomitant]
     Active Substance: WATER
     Dosage: USE AS DIRECTED
     Dates: start: 20160525, end: 20160526
  5. CALCIUM CARBONATE. [Concomitant]
     Active Substance: CALCIUM CARBONATE
     Dates: start: 20151117
  6. FELODIPINE. [Concomitant]
     Active Substance: FELODIPINE
     Dates: start: 20151117
  7. FENOFIBRATE. [Concomitant]
     Active Substance: FENOFIBRATE
     Dates: start: 20151117
  8. HYDROCORTISONE/HYDROCORTISONE ACEPONATE/HYDROCORTISONE ACETATE/HYDROCORTISONE BUTYRATE/HYDROCORTISON [Concomitant]
     Route: 030
     Dates: start: 20160120
  9. NOVOMIX [Concomitant]
     Active Substance: INSULIN ASPART
     Dosage: AS DIRECTED.
     Dates: start: 20151117
  10. FLUDROCORTISONE [Concomitant]
     Active Substance: FLUDROCORTISONE
     Dates: start: 20160329
  11. HYDROXOCOBALAMIN/HYDROXOCOBALAMIN ACETATE/HYDROXOCOBALAMIN HYDROCHLORIDE [Concomitant]
     Dosage: USE AS DIRECTED
     Dates: start: 20160524, end: 20160525
  12. LEVOTHYROXINE. [Concomitant]
     Active Substance: LEVOTHYROXINE
     Dates: start: 20151117
  13. OMACOR [Concomitant]
     Active Substance: OMEGA-3-ACID ETHYL ESTERS
     Dates: start: 20151117
  14. FOLIC ACID. [Concomitant]
     Active Substance: FOLIC ACID
     Dates: start: 20151117
  15. RAMIPRIL. [Concomitant]
     Active Substance: RAMIPRIL
     Dates: start: 20151117
  16. ATORVASTATIN [Concomitant]
     Active Substance: ATORVASTATIN
     Dosage: AT NIGHT
     Dates: start: 20151117
  17. SANDO K [Concomitant]
     Dates: start: 20151117

REACTIONS (1)
  - Photosensitivity reaction [Recovering/Resolving]

NARRATIVE: CASE EVENT DATE: 20150401
